FAERS Safety Report 6159184-X (Version None)
Quarter: 2009Q2

REPORT INFORMATION
  Report Type: 
  Country: None (occurrence: None)
  Receive Date: 20090417
  Receipt Date: 20090403
  Transmission Date: 20091009
  Serious: Yes (Other)
  Sender: FDA-Public Use
  Company Number: DE-GENENTECH-279703

PATIENT

DRUGS (3)
  1. LUCENTIS [Suspect]
     Indication: CHOROIDAL NEOVASCULARISATION
     Dosage: 0.5 MG, SINGLE
     Route: 031
     Dates: start: 20090205
  2. LUCENTIS [Suspect]
     Indication: RETINAL OEDEMA
  3. OFTAQUIX [Concomitant]
     Indication: DRUG USE FOR UNKNOWN INDICATION

REACTIONS (3)
  - ANTERIOR CHAMBER INFLAMMATION [None]
  - RETINAL HAEMORRHAGE [None]
  - VITREOUS HAEMORRHAGE [None]
